FAERS Safety Report 15320892 (Version 3)
Quarter: 2019Q1

REPORT INFORMATION
  Report Type: Spontaneous
  Country: US (occurrence: US)
  Receive Date: 20180827
  Receipt Date: 20190101
  Transmission Date: 20190417
  Serious: No
  Sender: FDA-Public Use
  Company Number: US-ASTRAZENECA-2018SE98241

PATIENT
  Age: 22530 Day
  Sex: Female

DRUGS (2)
  1. BENADRYL [Concomitant]
     Active Substance: DIPHENHYDRAMINE HYDROCHLORIDE
     Route: 048
  2. BYDUREON [Suspect]
     Active Substance: EXENATIDE
     Indication: TYPE 2 DIABETES MELLITUS
     Route: 058
     Dates: start: 20180730, end: 20180806

REACTIONS (8)
  - Insomnia [Unknown]
  - Injection site swelling [Unknown]
  - Headache [Recovered/Resolved]
  - Device issue [Unknown]
  - Pruritus [Not Recovered/Not Resolved]
  - Injection site mass [Unknown]
  - Dyspepsia [Unknown]
  - Palmar erythema [Unknown]

NARRATIVE: CASE EVENT DATE: 20180731
